FAERS Safety Report 21324214 (Version 1)
Quarter: 2022Q3

REPORT INFORMATION
  Report Type: Spontaneous
  Country: AU (occurrence: AU)
  Receive Date: 20220912
  Receipt Date: 20220912
  Transmission Date: 20221027
  Serious: Yes (Hospitalization, Other)
  Sender: FDA-Public Use
  Company Number: AU-GLAXOSMITHKLINE-AU2022GSK129003

PATIENT

DRUGS (2)
  1. FLUTICASONE PROPIONATE\SALMETEROL XINAFOATE [Suspect]
     Active Substance: FLUTICASONE PROPIONATE\SALMETEROL XINAFOATE
     Indication: Asthma
     Dosage: 250/25?MCG TWICE DAILY
     Route: 055
  2. PREDNISOLONE [Suspect]
     Active Substance: PREDNISOLONE
     Indication: Asthma
     Dosage: 25 MG
     Route: 048

REACTIONS (11)
  - Disseminated varicella zoster virus infection [Recovering/Resolving]
  - Rash papular [Recovering/Resolving]
  - Cough [Recovering/Resolving]
  - Pyrexia [Recovering/Resolving]
  - Acute generalised exanthematous pustulosis [Recovering/Resolving]
  - Respiratory failure [Recovering/Resolving]
  - Respiratory alkalosis [Recovering/Resolving]
  - Thrombocytopenia [Recovering/Resolving]
  - Asthma [Recovering/Resolving]
  - Pneumonia viral [Recovering/Resolving]
  - Wheezing [Recovering/Resolving]
